FAERS Safety Report 16970022 (Version 1)
Quarter: 2019Q4

REPORT INFORMATION
  Report Type: Report from Study
  Country: US (occurrence: US)
  Receive Date: 20191029
  Receipt Date: 20191029
  Transmission Date: 20200122
  Serious: No
  Sender: FDA-Public Use
  Company Number: NVSC2019US017773

PATIENT
  Sex: Male
  Weight: 73.24 kg

DRUGS (1)
  1. TREPROSTINIL. [Suspect]
     Active Substance: TREPROSTINIL
     Indication: PULMONARY ARTERIAL HYPERTENSION
     Dosage: 58 (NG/KG/MIN) CONTINUOUS
     Route: 042
     Dates: start: 20190726

REACTIONS (1)
  - Diarrhoea [Unknown]
